FAERS Safety Report 11777116 (Version 1)
Quarter: 2015Q4

REPORT INFORMATION
  Report Type: Spontaneous
  Country: IT (occurrence: IT)
  Receive Date: 20151125
  Receipt Date: 20151125
  Transmission Date: 20160304
  Serious: Yes (Other)
  Sender: FDA-Public Use
  Company Number: IT-SUN PHARMACEUTICAL INDUSTRIES LTD-2015RR-106543

PATIENT

DRUGS (2)
  1. CITALOPRAM [Suspect]
     Active Substance: CITALOPRAM HYDROBROMIDE
     Indication: ANXIETY DISORDER
     Dosage: 20 DF, DROPS
     Route: 048
     Dates: start: 20150813, end: 20150813
  2. PASADEN [Suspect]
     Active Substance: ETIZOLAM
     Indication: ANXIETY DISORDER
     Dosage: 20 DF, UNK
     Route: 048
     Dates: start: 20150813, end: 20150813

REACTIONS (4)
  - Vision blurred [Recovering/Resolving]
  - Asthenia [Recovering/Resolving]
  - Dizziness [Recovering/Resolving]
  - Drug abuse [Recovering/Resolving]

NARRATIVE: CASE EVENT DATE: 20150813
